FAERS Safety Report 23196937 (Version 1)
Quarter: 2023Q4

REPORT INFORMATION
  Report Type: Spontaneous
  Country: US (occurrence: None)
  Receive Date: 20231116
  Receipt Date: 20231116
  Transmission Date: 20240110
  Serious: Yes (Hospitalization)
  Sender: FDA-Public Use
  Company Number: None

PATIENT
  Age: 47 Year
  Sex: Male

DRUGS (5)
  1. MYCOPHENOLATE MOFETIL [Suspect]
     Active Substance: MYCOPHENOLATE MOFETIL
     Dosage: FREQUENCY : TWICE A DAY;?
     Route: 048
  2. TACROLIMUS [Suspect]
     Active Substance: TACROLIMUS
     Dosage: FREQUENCY : TWICE A DAY;?
     Route: 048
  3. Sulfamethoxazole/ TMP SS [Concomitant]
  4. Valganciclovir 450 mg [Concomitant]
  5. Nystatin 100000 susp [Concomitant]

REACTIONS (2)
  - Oral pain [None]
  - Adverse food reaction [None]

NARRATIVE: CASE EVENT DATE: 20231116
